FAERS Safety Report 9965158 (Version 1)
Quarter: 2014Q1

REPORT INFORMATION
  Report Type: Report from Study
  Country: US (occurrence: US)
  Receive Date: 20140305
  Receipt Date: 20140305
  Transmission Date: 20141002
  Serious: No
  Sender: FDA-Public Use
  Company Number: US-ABBVIE-13P-163-1127913-00

PATIENT
  Age: 63 Year
  Sex: Male

DRUGS (13)
  1. HUMIRA [Suspect]
     Indication: RHEUMATOID ARTHRITIS
     Dates: start: 201205
  2. GABAPENTIN [Concomitant]
     Indication: NEUROPATHY PERIPHERAL
  3. TRAZADONE [Concomitant]
     Indication: PAIN
     Route: 048
  4. HYDROXYCHLOROQUINE [Concomitant]
     Indication: RHEUMATOID ARTHRITIS
  5. PAIN TOPICAL CREAM [Concomitant]
     Indication: PAIN
     Route: 061
  6. METOFORMIN [Concomitant]
     Indication: DIABETES MELLITUS
  7. CACLUIM/VITAMIN D [Concomitant]
     Indication: PRODUCT USED FOR UNKNOWN INDICATION
  8. MULTIVITAMIN [Concomitant]
     Indication: PRODUCT USED FOR UNKNOWN INDICATION
  9. TRAZADONE [Concomitant]
     Indication: INSOMNIA
     Dosage: 100 MG AT BEDTIME
     Route: 048
  10. ANTIDEPRESSANTS [Concomitant]
     Indication: DEPRESSION
  11. PRAVASTATIN [Concomitant]
     Indication: PRODUCT USED FOR UNKNOWN INDICATION
  12. BUPROPRION [Concomitant]
     Indication: DEPRESSION
  13. SKIN CREAM [Concomitant]
     Indication: ILL-DEFINED DISORDER

REACTIONS (5)
  - Sneezing [Recovered/Resolved]
  - Post-traumatic stress disorder [Recovering/Resolving]
  - Nasopharyngitis [Recovered/Resolved]
  - Rhinorrhoea [Recovered/Resolved]
  - Dizziness [Recovered/Resolved]
